FAERS Safety Report 18341670 (Version 1)
Quarter: 2020Q4

REPORT INFORMATION
  Report Type: Spontaneous
  Country: US (occurrence: US)
  Receive Date: 20201005
  Receipt Date: 20201005
  Transmission Date: 20210113
  Serious: No
  Sender: FDA-Public Use
  Company Number: US-SA-2020SA268496

PATIENT

DRUGS (3)
  1. GAVISCON [Suspect]
     Active Substance: ALUMINUM HYDROXIDE\MAGNESIUM CARBONATE
     Indication: ANTACID THERAPY
     Dosage: UNK
  2. XELJANZ [Suspect]
     Active Substance: TOFACITINIB CITRATE
     Indication: NEURALGIA
     Dosage: 1 DF, QD
  3. XELJANZ [Suspect]
     Active Substance: TOFACITINIB CITRATE
     Indication: ARTHRALGIA

REACTIONS (4)
  - Abdominal discomfort [Unknown]
  - Product solubility abnormal [Unknown]
  - Gastric disorder [Unknown]
  - Drug ineffective [Unknown]
